FAERS Safety Report 13481104 (Version 2)
Quarter: 2017Q2

REPORT INFORMATION
  Report Type: Spontaneous
  Country: FR (occurrence: FR)
  Receive Date: 20170425
  Receipt Date: 20170511
  Transmission Date: 20170830
  Serious: Yes (Hospitalization)
  Sender: FDA-Public Use
  Company Number: FR-MERCK KGAA-1065868

PATIENT
  Age: 56 Year
  Sex: Female

DRUGS (19)
  1. NOVOTHYROX [Suspect]
     Active Substance: LEVOTHYROXINE SODIUM
     Indication: HYPOTHYROIDISM
     Route: 048
  2. ALPRAZOLAM. [Concomitant]
     Active Substance: ALPRAZOLAM
  3. DOLIPRANE [Concomitant]
     Active Substance: ACETAMINOPHEN
  4. RIVOTRIL [Concomitant]
     Active Substance: CLONAZEPAM
  5. CONTRAMAL [Suspect]
     Active Substance: TRAMADOL HYDROCHLORIDE
     Route: 048
  6. DANTRIUM [Concomitant]
     Active Substance: DANTROLENE SODIUM
  7. BACLOFENE [Concomitant]
     Active Substance: BACLOFEN
  8. DEPAMIDE [Concomitant]
     Active Substance: VALPROMIDE
  9. VENLAFAXINE [Suspect]
     Active Substance: VENLAFAXINE HYDROCHLORIDE
     Route: 048
     Dates: end: 20170318
  10. TAHOR [Suspect]
     Active Substance: ATORVASTATIN CALCIUM
     Route: 048
     Dates: end: 20170318
  11. LETROZOLE. [Concomitant]
     Active Substance: LETROZOLE
  12. LANSOPRAZOLE MYLAN [Concomitant]
     Active Substance: LANSOPRAZOLE
  13. GABAPENTIN. [Suspect]
     Active Substance: GABAPENTIN
     Route: 048
  14. ALENDRONATE [Concomitant]
     Active Substance: ALENDRONATE SODIUM
  15. CALCIDOSE VITAMINE D [Concomitant]
     Active Substance: CALCIUM\CHOLECALCIFEROL
  16. LANSOYL [Concomitant]
     Active Substance: MINERAL OIL
  17. CONTRAMAL [Suspect]
     Active Substance: TRAMADOL HYDROCHLORIDE
     Route: 048
     Dates: end: 20170318
  18. UVEDOSE [Concomitant]
     Active Substance: CHOLECALCIFEROL
  19. VASELINE PURE [Concomitant]
     Active Substance: PETROLATUM

REACTIONS (2)
  - Tremor [Recovered/Resolved]
  - Hypoglycaemia [Recovered/Resolved]

NARRATIVE: CASE EVENT DATE: 20170318
